FAERS Safety Report 23657899 (Version 1)
Quarter: 2024Q1

REPORT INFORMATION
  Report Type: Spontaneous
  Country: US (occurrence: None)
  Receive Date: 20240320
  Receipt Date: 20240320
  Transmission Date: 20240410
  Serious: Yes (Hospitalization)
  Sender: FDA-Public Use
  Company Number: None

PATIENT
  Age: 31 Year
  Sex: Female

DRUGS (1)
  1. SKYRIZI [Suspect]
     Active Substance: RISANKIZUMAB-RZAA
     Indication: Crohn^s disease
     Dosage: 360 MG : EVERY 8 WEEKS SUBCUTANEOUS?
     Route: 058
     Dates: start: 202301

REACTIONS (2)
  - Postoperative abscess [None]
  - Crohn^s disease [None]

NARRATIVE: CASE EVENT DATE: 20240305
